FAERS Safety Report 5761354-7 (Version None)
Quarter: 2008Q2

REPORT INFORMATION
  Report Type: 
  Country: None (occurrence: None)
  Receive Date: 20080606
  Receipt Date: 20080529
  Transmission Date: 20081010
  Serious: Yes (Hospitalization, Other)
  Sender: FDA-Public Use
  Company Number: SE-ABBOTT-08P-150-0453954-00

PATIENT
  Age: 62 Year
  Sex: Female

DRUGS (42)
  1. ZEMPLAR [Suspect]
     Indication: DRUG USE FOR UNKNOWN INDICATION
     Dosage: 5 MCG/ML
     Route: 050
  2. SODIUM BICARBONATE [Concomitant]
     Indication: ACIDOSIS
     Route: 048
  3. OMEPRAZOLE [Concomitant]
     Indication: GASTROOESOPHAGEAL REFLUX DISEASE
     Route: 048
  4. LACTULOSE [Concomitant]
     Indication: CONSTIPATION
     Dosage: 670MG/ML, 15-30ML
     Route: 048
  5. HUMALOG PEN [Concomitant]
     Indication: DRUG USE FOR UNKNOWN INDICATION
     Dosage: 100 E/ML, 10+10+1
     Route: 058
  6. LANTUS OPTISET [Concomitant]
     Indication: DRUG USE FOR UNKNOWN INDICATION
     Dosage: 100IU/ML
     Route: 050
  7. ALFACALCIDOL [Concomitant]
     Indication: DRUG USE FOR UNKNOWN INDICATION
     Route: 048
  8. TRIOBE [Concomitant]
     Indication: DRUG USE FOR UNKNOWN INDICATION
     Route: 048
  9. ORALVITE [Concomitant]
     Indication: DRUG USE FOR UNKNOWN INDICATION
     Route: 048
  10. CALCIUM CARBONATE [Concomitant]
     Indication: MINERAL SUPPLEMENTATION
     Route: 048
  11. CLOPIDOGREL [Concomitant]
     Indication: THROMBOSIS
     Route: 048
  12. ASPIRIN [Concomitant]
     Indication: THROMBOSIS
     Route: 048
  13. DARBEPOETIN ALFA [Concomitant]
     Indication: DRUG USE FOR UNKNOWN INDICATION
     Route: 050
  14. DIGOXIN [Concomitant]
     Indication: ARRHYTHMIA PROPHYLAXIS
     Route: 048
  15. ISOSORBIDE MONONITRATE [Concomitant]
     Indication: ANGINA PECTORIS
     Route: 048
  16. METOPROLOL SUCCINATE [Concomitant]
     Indication: PALPITATIONS
     Route: 048
  17. RAMIPRIL [Concomitant]
     Indication: CARDIAC DISORDER
     Dosage: INCREASE DEP. ON BT
     Route: 048
  18. PREDNISOLONE [Concomitant]
     Indication: ARTHRALGIA
     Route: 048
  19. GABAPENTIN [Concomitant]
     Indication: NEURALGIA
     Route: 048
  20. LEVOMEPROMAZINE [Concomitant]
     Indication: INSOMNIA
     Route: 048
  21. DIXYRAZINE [Concomitant]
     Indication: ANXIETY
     Route: 048
  22. OXAZEPAM [Concomitant]
     Indication: ANXIETY
     Route: 048
  23. ZOLPIDEM TARTRATE [Concomitant]
     Indication: INSOMNIA
     Route: 048
  24. AMITRIPTYLINE HYDROCHLORIDE [Concomitant]
     Indication: PAIN
     Route: 048
  25. CITALOPRAM HYDROBROMIDE [Concomitant]
     Indication: MOOD ALTERED
     Route: 048
  26. SEVELAMER [Concomitant]
     Indication: BLOOD PHOSPHORUS INCREASED
     Route: 048
  27. SUCRALFATE [Concomitant]
     Indication: DYSPEPSIA
     Dosage: 200MG/ML
     Route: 048
  28. GAVISCON [Concomitant]
     Indication: DYSPEPSIA
     Route: 048
  29. SODIUM PICOSULFATE [Concomitant]
     Indication: CONSTIPATION
     Route: 048
  30. NYSTATIN [Concomitant]
     Indication: FUNGAL INFECTION
     Dosage: 100000 IU/ML
     Route: 048
  31. GLYCERYL TRINITRATE [Concomitant]
     Indication: ANGINA PECTORIS
     Route: 060
  32. METOPROLOL SUCCINATE [Concomitant]
     Route: 048
  33. DAKTACORT [Concomitant]
     Indication: DRUG USE FOR UNKNOWN INDICATION
     Route: 061
  34. BETNOVAT CUTAN SOLUTION [Concomitant]
     Indication: DRUG USE FOR UNKNOWN INDICATION
     Dosage: IN SCALP
  35. NABUMETONE [Concomitant]
     Indication: ARTHRALGIA
     Route: 048
  36. NABUMETONE [Concomitant]
     Indication: MYALGIA
  37. OXYCODONE HYDROCHLORIDE [Concomitant]
     Indication: PAIN
     Route: 048
  38. ACETAMINOPHEN [Concomitant]
     Indication: PAIN
     Route: 048
  39. BUDESONIDE [Concomitant]
     Indication: NASAL CONGESTION
     Route: 045
  40. ACETYLCYSTEINE [Concomitant]
     Indication: SECRETION DISCHARGE
     Route: 048
  41. COCILLANA-ETYFIN SOLUTION [Concomitant]
     Indication: DRUG USE FOR UNKNOWN INDICATION
     Route: 048
  42. LEVOCABASTINE HYDROCHLORIDE [Concomitant]
     Indication: EYE PAIN
     Route: 047

REACTIONS (8)
  - ATELECTASIS [None]
  - CHEST DISCOMFORT [None]
  - DYSPNOEA [None]
  - EJECTION FRACTION ABNORMAL [None]
  - HYPOCALCAEMIA [None]
  - MYOCARDIAL INFARCTION [None]
  - PLEURAL EFFUSION [None]
  - UPPER RESPIRATORY TRACT INFECTION [None]
